FAERS Safety Report 5106958-X (Version None)
Quarter: 2006Q3

REPORT INFORMATION
  Report Type: 
  Country: None (occurrence: None)
  Receive Date: 20060913
  Receipt Date: 20060901
  Transmission Date: 20061208
  Serious: Yes (Hospitalization, Other)
  Sender: FDA-Public Use
  Company Number: 2006RL000326

PATIENT
  Age: 16 Year
  Sex: Female

DRUGS (1)
  1. PROPAFENONE HCL [Suspect]
     Indication: SUPRAVENTRICULAR EXTRASYSTOLES
     Dosage: SEE IMAGE
     Route: 048

REACTIONS (12)
  - BRUGADA SYNDROME [None]
  - BUNDLE BRANCH BLOCK RIGHT [None]
  - DRUG TOXICITY [None]
  - ELECTROCARDIOGRAM PR PROLONGATION [None]
  - ELECTROCARDIOGRAM QRS COMPLEX PROLONGED [None]
  - ELECTROCARDIOGRAM ST SEGMENT ELEVATION [None]
  - INTENTIONAL OVERDOSE [None]
  - NAUSEA [None]
  - SINUS BRADYCARDIA [None]
  - SUICIDE ATTEMPT [None]
  - SYNCOPE [None]
  - VOMITING [None]
